FAERS Safety Report 7106067-4 (Version None)
Quarter: 2010Q4

REPORT INFORMATION
  Report Type: 
  Country: None (occurrence: None)
  Receive Date: 20101116
  Receipt Date: 20101110
  Transmission Date: 20110411
  Serious: Yes (Death, Other)
  Sender: FDA-Public Use
  Company Number: BE-PFIZER INC-2010123907

PATIENT
  Age: 64 Year
  Sex: Male
  Weight: 118 kg

DRUGS (7)
  1. SUTENT [Suspect]
     Indication: METASTATIC RENAL CELL CARCINOMA
     Dosage: 50 MG, 1X/DAY
     Route: 048
  2. FRAXIPARINE [Suspect]
     Dosage: 1 MG, UNK
     Route: 058
     Dates: start: 20081001
  3. ELTHYRONE [Concomitant]
     Dosage: 50 UG, UNK
     Route: 048
  4. ARIMIDEX [Concomitant]
     Dosage: 1 MG, UNK
     Route: 048
     Dates: start: 20081201
  5. LASIX [Concomitant]
     Dosage: 40 MG, UNK
     Route: 048
     Dates: start: 20081001
  6. FLUOXETINE [Concomitant]
     Dosage: 20 MG, UNK
     Route: 048
     Dates: start: 20100301
  7. KREDEX [Concomitant]
     Dosage: 12.5 MG, 2X/DAY
     Route: 048
     Dates: start: 20081101

REACTIONS (3)
  - CEREBRAL HAEMORRHAGE [None]
  - FALL [None]
  - FATIGUE [None]
